FAERS Safety Report 5632255-X (Version None)
Quarter: 2008Q1

REPORT INFORMATION
  Report Type: 
  Country: None (occurrence: None)
  Receive Date: 20080220
  Receipt Date: 20080215
  Transmission Date: 20080703
  Serious: Yes (Other)
  Sender: FDA-Public Use
  Company Number: B0508202A

PATIENT
  Age: 7 Year

DRUGS (1)
  1. RELENZA [Suspect]
     Indication: DRUG USE FOR UNKNOWN INDICATION
     Route: 055
     Dates: start: 20080213

REACTIONS (2)
  - ABNORMAL BEHAVIOUR [None]
  - HALLUCINATION [None]
